FAERS Safety Report 5224498-4 (Version None)
Quarter: 2007Q1

REPORT INFORMATION
  Report Type: 
  Country: None (occurrence: None)
  Receive Date: 20070130
  Receipt Date: 20070119
  Transmission Date: 20070707
  Serious: Yes (Other)
  Sender: FDA-Public Use
  Company Number: US-PFIZER INC-2007005265

PATIENT
  Sex: Female
  Weight: 54.4 kg

DRUGS (6)
  1. GABAPENTIN [Suspect]
     Indication: DEPRESSION
  2. ZYPREXA [Suspect]
  3. FEXOFENADINE [Concomitant]
  4. LEXAPRO [Concomitant]
  5. LOMOTIL [Concomitant]
  6. ALL OTHER THERAPEUTIC PRODUCTS [Concomitant]

REACTIONS (2)
  - OVERDOSE [None]
  - SUICIDE ATTEMPT [None]
